FAERS Safety Report 8261688-0 (Version None)
Quarter: 2012Q2

REPORT INFORMATION
  Report Type: 
  Country: None (occurrence: None)
  Receive Date: 20120405
  Receipt Date: 20120327
  Transmission Date: 20120825
  Serious: Yes (Other)
  Sender: FDA-Public Use
  Company Number: US-ELI_LILLY_AND_COMPANY-US201202002365

PATIENT
  Sex: Female

DRUGS (6)
  1. HYDROCHLOROTHIAZIDE [Concomitant]
     Dosage: 1 DF, QD
  2. MOVE FREE [Concomitant]
     Dosage: UNK, QD
  3. TRIAZOLAM [Concomitant]
     Dosage: UNK, EACH EVENING
  4. FELODIPINE [Concomitant]
     Dosage: 5 MG, QD
  5. MULTI-VITAMINS [Concomitant]
     Dosage: UNK, QD
  6. FORTEO [Suspect]
     Indication: OSTEOPOROSIS
     Dosage: 20 UG, QD
     Route: 065
     Dates: start: 20110401

REACTIONS (2)
  - CATARACT OPERATION [None]
  - MALIGNANT NEOPLASM OF EYE [None]
